FAERS Safety Report 10343876 (Version 2)
Quarter: 2014Q4

REPORT INFORMATION
  Report Type: Spontaneous
  Country: JP (occurrence: JP)
  Receive Date: 20140726
  Receipt Date: 20141021
  Transmission Date: 20150528
  Serious: Yes (Death)
  Sender: FDA-Public Use
  Company Number: PHHY2013JP158855

PATIENT
  Age: 66 Year
  Sex: Male

DRUGS (2)
  1. EXJADE [Suspect]
     Active Substance: DEFERASIROX
     Indication: WALDENSTROM^S MACROGLOBULINAEMIA
     Dosage: 250 MG, UNK
     Route: 065
  2. EXJADE [Suspect]
     Active Substance: DEFERASIROX
     Dosage: 125 MG, UNK
     Route: 065
     Dates: start: 2012, end: 2012

REACTIONS (2)
  - Malignant neoplasm progression [Fatal]
  - Waldenstrom^s macroglobulinaemia [Fatal]

NARRATIVE: CASE EVENT DATE: 2012
